FAERS Safety Report 7403823-X (Version None)
Quarter: 2011Q2

REPORT INFORMATION
  Report Type: 
  Country: None (occurrence: None)
  Receive Date: 20110408
  Receipt Date: 20110405
  Transmission Date: 20111010
  Serious: Yes (Death, Other)
  Sender: FDA-Public Use
  Company Number: PHHY2011JP27757

PATIENT
  Age: 55 Year
  Sex: Male

DRUGS (3)
  1. METHYLPREDNISOLONE [Suspect]
     Indication: HENOCH-SCHONLEIN PURPURA NEPHRITIS
     Dosage: 500 MG, QD
  2. PREDNISOLONE [Suspect]
     Indication: HENOCH-SCHONLEIN PURPURA NEPHRITIS
     Dosage: 60 MG, QD
  3. CYCLOSPORINE [Suspect]
     Indication: IMMUNOSUPPRESSION
     Dosage: 150 MG, QD

REACTIONS (9)
  - ABDOMINAL PAIN [None]
  - ANAEMIA [None]
  - JEJUNAL ULCER [None]
  - GASTROINTESTINAL HAEMORRHAGE [None]
  - HAEMATOCHEZIA [None]
  - DUODENAL ULCER [None]
  - SHOCK HAEMORRHAGIC [None]
  - IMMUNE SYSTEM DISORDER [None]
  - CYTOMEGALOVIRUS GASTROINTESTINAL INFECTION [None]
